FAERS Safety Report 6036701-1 (Version None)
Quarter: 2009Q1

REPORT INFORMATION
  Report Type: 
  Country: None (occurrence: None)
  Receive Date: 20090114
  Receipt Date: 20090108
  Transmission Date: 20090719
  Serious: Yes (Other)
  Sender: FDA-Public Use
  Company Number: US-BAYER-200839635NA

PATIENT
  Age: 49 Year
  Sex: Female
  Weight: 67 kg

DRUGS (1)
  1. YAZ [Suspect]
     Indication: MENORRHAGIA
     Route: 048
     Dates: start: 20080911, end: 20081128

REACTIONS (1)
  - THROMBOSIS [None]
